FAERS Safety Report 16025860 (Version 1)
Quarter: 2019Q1

REPORT INFORMATION
  Report Type: Spontaneous
  Country: GR (occurrence: GR)
  Receive Date: 20190302
  Receipt Date: 20190302
  Transmission Date: 20190418
  Serious: Yes (Death, Other)
  Sender: FDA-Public Use
  Company Number: GR-AUROBINDO-AUR-APL-2019-009483

PATIENT

DRUGS (5)
  1. PIPERACILLIN+TAZOBACTAM INJECTION [Suspect]
     Active Substance: PIPERACILLIN SODIUM\TAZOBACTAM SODIUM
     Indication: STREPTOCOCCAL BACTERAEMIA
     Dosage: 4.5 GRAM
     Route: 042
  2. CALCIUM GLUCONATE. [Suspect]
     Active Substance: CALCIUM GLUCONATE
     Indication: STREPTOCOCCAL BACTERAEMIA
     Dosage: UNK
     Route: 065
  3. VANCOMYCIN HYDROCHLORIDE. [Suspect]
     Active Substance: VANCOMYCIN HYDROCHLORIDE
     Indication: STREPTOCOCCAL BACTERAEMIA
     Dosage: 1 GRAM, 1 G, UNK
     Route: 042
  4. SODIUM HYDROGEN CARBONATE [Suspect]
     Active Substance: SODIUM BICARBONATE
     Indication: STREPTOCOCCAL BACTERAEMIA
     Dosage: UNK
     Route: 042
  5. AMIKACIN. [Suspect]
     Active Substance: AMIKACIN
     Indication: STREPTOCOCCAL BACTERAEMIA
     Dosage: 1 GRAM 1 G, UNK
     Route: 042

REACTIONS (2)
  - Pulseless electrical activity [Fatal]
  - Cardiac arrest [Fatal]
